FAERS Safety Report 10068812 (Version 2)
Quarter: 2014Q2

REPORT INFORMATION
  Report Type: Spontaneous
  Country: US (occurrence: US)
  Receive Date: 20140409
  Receipt Date: 20140417
  Transmission Date: 20141212
  Serious: Yes (Other)
  Sender: FDA-Public Use
  Company Number: PHHY2014US042170

PATIENT
  Age: 3 Year
  Sex: Male
  Weight: 10.7 kg

DRUGS (9)
  1. CUBICIN [Suspect]
     Indication: ENTEROCOCCAL INFECTION
     Dosage: 10 MG/KG, UNK
     Route: 042
     Dates: start: 20140325, end: 20140401
  2. CUBICIN [Suspect]
     Indication: OFF LABEL USE
     Dosage: 12 MG/KG, UNK
     Route: 042
     Dates: start: 20140402
  3. CUBICIN [Suspect]
     Indication: ENTEROCOCCAL BACTERAEMIA
  4. CUBICIN [Suspect]
     Indication: CENTRAL NERVOUS SYSTEM INFECTION
  5. AMPICILLIN [Suspect]
     Indication: ENTEROCOCCAL INFECTION
     Dosage: 700 MG, Q4H
     Route: 042
     Dates: start: 20140325
  6. VANCOMYCIN [Suspect]
     Indication: ENTEROCOCCAL INFECTION
     Dosage: 240 MG, Q6H
     Route: 042
     Dates: start: 20140330
  7. MEROPENEM [Suspect]
     Indication: ENTEROCOCCAL INFECTION
     Route: 042
  8. GENTAMYCIN [Suspect]
     Indication: ENTEROCOCCAL INFECTION
     Dosage: 15 MG, Q12H
     Route: 042
     Dates: start: 20140322
  9. LINEZOLID [Suspect]
     Indication: ENTEROCOCCAL INFECTION

REACTIONS (4)
  - Enterococcal bacteraemia [Not Recovered/Not Resolved]
  - Cerebral ventricle dilatation [Not Recovered/Not Resolved]
  - Papilloedema [Not Recovered/Not Resolved]
  - Drug ineffective [Not Recovered/Not Resolved]
